FAERS Safety Report 21456557 (Version 1)
Quarter: 2022Q4

REPORT INFORMATION
  Report Type: Spontaneous
  Country: RU (occurrence: None)
  Receive Date: 20221014
  Receipt Date: 20221014
  Transmission Date: 20230113
  Serious: Yes (Other)
  Sender: FDA-Public Use
  Company Number: RU-ROCHE-3100140

PATIENT

DRUGS (1)
  1. HEMLIBRA [Suspect]
     Active Substance: EMICIZUMAB-KXWH
     Indication: Factor VIII deficiency
     Route: 065
     Dates: start: 201909

REACTIONS (5)
  - Contusion [Unknown]
  - Joint dislocation [Unknown]
  - Pain [Unknown]
  - Appendicitis [Unknown]
  - Post procedural haemorrhage [Unknown]
